FAERS Safety Report 10792590 (Version 2)
Quarter: 2015Q1

REPORT INFORMATION
  Report Type: Spontaneous
  Country: US (occurrence: US)
  Receive Date: 20150213
  Receipt Date: 20150305
  Transmission Date: 20150721
  Serious: Yes (Death, Other)
  Sender: FDA-Public Use
  Company Number: US-GILEAD-2015-0136997

PATIENT
  Age: 67 Year
  Sex: Male
  Weight: 55.33 kg

DRUGS (8)
  1. ZIAGEN [Concomitant]
     Active Substance: ABACAVIR SULFATE
     Dosage: 300 MG, UNK
     Route: 048
     Dates: start: 2010
  2. HARVONI [Suspect]
     Active Substance: LEDIPASVIR\SOFOSBUVIR
     Indication: HEPATITIS C
     Dosage: 1 DF, UNK
     Route: 048
     Dates: start: 20141110
  3. NEUROTIN                           /01003001/ [Concomitant]
     Dosage: 600 MG, UNK
     Route: 048
     Dates: start: 2011
  4. LYRICA [Concomitant]
     Active Substance: PREGABALIN
     Dosage: 100 MG, UNK
     Route: 048
     Dates: start: 2011
  5. REYATAZ [Concomitant]
     Active Substance: ATAZANAVIR SULFATE
     Dosage: 300 MG, UNK
     Route: 048
     Dates: start: 2010
  6. TIVICAY [Concomitant]
     Active Substance: DOLUTEGRAVIR SODIUM
     Dosage: 50 MG, UNK
     Route: 048
     Dates: start: 20140411
  7. NORVIR [Concomitant]
     Active Substance: RITONAVIR
     Dosage: 100 MG, UNK
     Route: 048
     Dates: start: 2010
  8. VITAMIN D3 [Concomitant]
     Active Substance: CHOLECALCIFEROL
     Dosage: 1000 IU, UNK
     Route: 048
     Dates: start: 2011

REACTIONS (5)
  - Death [Fatal]
  - Malaise [Recovering/Resolving]
  - Vomiting [Recovering/Resolving]
  - Abdominal pain [Recovering/Resolving]
  - Fatigue [Unknown]

NARRATIVE: CASE EVENT DATE: 201501
